FAERS Safety Report 17137308 (Version 4)
Quarter: 2020Q3

REPORT INFORMATION
  Report Type: Report from Study
  Country: US (occurrence: US)
  Receive Date: 20191210
  Receipt Date: 20200713
  Transmission Date: 20201102
  Serious: Yes (Hospitalization, Other)
  Sender: FDA-Public Use
  Company Number: US-ACTELION-A-NJ2017-164956

PATIENT
  Age: 66 Year
  Sex: Female
  Weight: 56.69 kg

DRUGS (7)
  1. UPTRAVI [Suspect]
     Active Substance: SELEXIPAG
     Dosage: 800 MCG, BID
     Route: 048
  2. UPTRAVI [Suspect]
     Active Substance: SELEXIPAG
     Dosage: 600 MCG, BID
     Route: 048
  3. UPTRAVI [Suspect]
     Active Substance: SELEXIPAG
     Dosage: 1200 MCG, BID
     Route: 048
  4. REMODULIN [Concomitant]
     Active Substance: TREPROSTINIL
  5. UPTRAVI [Suspect]
     Active Substance: SELEXIPAG
     Indication: PULMONARY ARTERIAL HYPERTENSION
     Dosage: 1600 MCG, BID
     Route: 048
  6. SILDENAFIL. [Concomitant]
     Active Substance: SILDENAFIL
  7. OPSUMIT [Suspect]
     Active Substance: MACITENTAN
     Indication: PULMONARY ARTERIAL HYPERTENSION
     Dosage: 10 MG, QD
     Route: 048
     Dates: start: 20180407

REACTIONS (19)
  - Pulmonary thrombosis [Unknown]
  - Insomnia [Recovering/Resolving]
  - Influenza [Unknown]
  - Diarrhoea [Unknown]
  - Catheter site vesicles [Unknown]
  - Product dose omission issue [Unknown]
  - Therapy change [Unknown]
  - Influenza like illness [Unknown]
  - Pain [Unknown]
  - Myalgia [Unknown]
  - Headache [Unknown]
  - Decreased appetite [Not Recovered/Not Resolved]
  - Dyspnoea [Unknown]
  - Arthralgia [Unknown]
  - Chest discomfort [Unknown]
  - Dyspnoea exertional [Unknown]
  - Back pain [Unknown]
  - Memory impairment [Unknown]
  - Oedema [Unknown]

NARRATIVE: CASE EVENT DATE: 201801
